FAERS Safety Report 9998936 (Version 1)
Quarter: 2014Q1

REPORT INFORMATION
  Report Type: Spontaneous
  Country: US (occurrence: None)
  Receive Date: 20140311
  Receipt Date: 20140311
  Transmission Date: 20141002
  Serious: Yes (Death, Hospitalization)
  Sender: FDA-Public Use
  Company Number: None

PATIENT
  Age: 4 Year
  Sex: Male
  Weight: 21.2 kg

DRUGS (4)
  1. DEXAMETHASONE [Suspect]
  2. METHOTREXATE [Suspect]
  3. PEG-L-ASPARAGINASE (PEGASPARGASE, ONCOSPAR) [Suspect]
  4. VINCRISTINE SULFATE [Suspect]

REACTIONS (16)
  - Abdominal pain [None]
  - Hypophagia [None]
  - Vomiting [None]
  - Syncope [None]
  - Unresponsive to stimuli [None]
  - Blood pressure immeasurable [None]
  - White blood cell count decreased [None]
  - Haemoglobin decreased [None]
  - Platelet count decreased [None]
  - Neutrophil count decreased [None]
  - Pulse absent [None]
  - Urosepsis [None]
  - Septic shock [None]
  - Escherichia test positive [None]
  - Acute respiratory distress syndrome [None]
  - Multi-organ failure [None]
